FAERS Safety Report 14151042 (Version 2)
Quarter: 2017Q4

REPORT INFORMATION
  Report Type: Spontaneous
  Country: US (occurrence: US)
  Receive Date: 20171102
  Receipt Date: 20171115
  Transmission Date: 20180321
  Serious: Yes (Other)
  Sender: FDA-Public Use
  Company Number: US-BRISTOL-MYERS SQUIBB COMPANY-BMS-2017-097396

PATIENT
  Sex: Male
  Weight: 72.56 kg

DRUGS (1)
  1. ELIQUIS [Suspect]
     Active Substance: APIXABAN
     Indication: CEREBROVASCULAR ACCIDENT PROPHYLAXIS
     Dosage: 5 MG, BID
     Route: 048
     Dates: start: 201705

REACTIONS (4)
  - Anaemia [Unknown]
  - Muscular weakness [Not Recovered/Not Resolved]
  - Parkinson^s disease [Unknown]
  - Movement disorder [Unknown]

NARRATIVE: CASE EVENT DATE: 2017
